FAERS Safety Report 16066907 (Version 1)
Quarter: 2019Q1

REPORT INFORMATION
  Report Type: Report from Study
  Country: US (occurrence: US)
  Receive Date: 20190313
  Receipt Date: 20190313
  Transmission Date: 20190418
  Serious: Yes (Hospitalization)
  Sender: FDA-Public Use
  Company Number: US-GILEAD-2019-0396165

PATIENT
  Age: 75 Year
  Sex: Female

DRUGS (8)
  1. ASPIRIN (E.C.) [Concomitant]
     Active Substance: ASPIRIN
  2. IRON [Concomitant]
     Active Substance: IRON
  3. AMIODARONE [Concomitant]
     Active Substance: AMIODARONE
  4. SYNTHROID [Concomitant]
     Active Substance: LEVOTHYROXINE SODIUM
  5. ALTACE [Concomitant]
     Active Substance: RAMIPRIL
  6. AMBRISENTAN [Suspect]
     Active Substance: AMBRISENTAN
     Indication: PULMONARY HYPERTENSION
     Dosage: 10 MG, QD
     Route: 065
  7. FUROSEMIDE. [Concomitant]
     Active Substance: FUROSEMIDE
  8. ADCIRCA [Concomitant]
     Active Substance: TADALAFIL

REACTIONS (1)
  - Dyspnoea [Unknown]
